FAERS Safety Report 4479661-7 (Version None)
Quarter: 2004Q4

REPORT INFORMATION
  Report Type: 
  Country: None (occurrence: None)
  Receive Date: 20041020
  Receipt Date: 20041007
  Transmission Date: 20050328
  Serious: Yes (Hospitalization)
  Sender: FDA-Public Use
  Company Number: BE-JNJFOC-20040808381

PATIENT
  Age: 3 Month
  Sex: Male

DRUGS (8)
  1. PROPULSID [Suspect]
     Route: 049
  2. ZANTAC [Concomitant]
     Route: 049
  3. GAVISCON [Concomitant]
     Route: 049
  4. GAVISCON [Concomitant]
     Route: 049
  5. MOTILIUM [Concomitant]
     Route: 065
  6. LOGASTRIC [Concomitant]
  7. ALUMINUM HYDROXIDE AND MAGNESIUM TRISILICATE [Concomitant]
  8. ALUMINUM HYDROXIDE AND MAGNESIUM TRISILICATE [Concomitant]

REACTIONS (4)
  - BRADYCARDIA [None]
  - BRADYPNOEA [None]
  - MALAISE [None]
  - RESPIRATORY DISORDER [None]
